FAERS Safety Report 22095361 (Version 3)
Quarter: 2025Q4

REPORT INFORMATION
  Report Type: Report from Study
  Country: EU (occurrence: EU)
  Receive Date: 20230314
  Receipt Date: 20251126
  Transmission Date: 20260117
  Serious: Yes (Hospitalization)
  Sender: PFIZER
  Company Number: EU-PFM-2023-01444

PATIENT
  Age: 46 Year
  Sex: Male

DRUGS (7)
  1. ENCORAFENIB [Suspect]
     Active Substance: ENCORAFENIB
     Indication: Malignant melanoma
     Dosage: 450 MG, QD (1/DAY)
     Route: 048
     Dates: start: 20221108, end: 20230215
  2. BINIMETINIB [Suspect]
     Active Substance: BINIMETINIB
     Indication: Malignant melanoma
     Dosage: 45 MG, BID (2/DAY)
     Route: 048
     Dates: start: 20221108, end: 20230215
  3. MIRTAZAPINE [Concomitant]
     Active Substance: MIRTAZAPINE
     Dosage: UNK
     Route: 065
     Dates: start: 20221122
  4. DENOSUMAB [Concomitant]
     Active Substance: DENOSUMAB
     Indication: Metastases to bone
     Dosage: UNK
     Route: 065
     Dates: start: 20230224
  5. VOMEX [Concomitant]
     Indication: Nausea
     Dosage: UNK
     Route: 065
     Dates: start: 20221108, end: 20221109
  6. IBUPROFEN [Concomitant]
     Active Substance: IBUPROFEN
     Indication: Chest pain
     Dosage: UNK
     Route: 065
     Dates: start: 20221108, end: 20221122
  7. TRAMADOL [Concomitant]
     Active Substance: TRAMADOL
     Indication: Chest pain
     Dosage: UNK
     Route: 065
     Dates: start: 20221108, end: 20221122

REACTIONS (7)
  - Weight decreased [Unknown]
  - Decreased appetite [Unknown]
  - General physical health deterioration [Unknown]
  - Ataxia [Not Recovered/Not Resolved]
  - Confusional state [Not Recovered/Not Resolved]
  - Nausea [Recovered/Resolved]
  - Upper respiratory tract infection [Recovered/Resolved]

NARRATIVE: CASE EVENT DATE: 20230224
